FAERS Safety Report 4519204-2 (Version None)
Quarter: 2004Q4

REPORT INFORMATION
  Report Type: 
  Country: None (occurrence: None)
  Receive Date: 20041206
  Receipt Date: 20041126
  Transmission Date: 20050328
  Serious: Yes (Hospitalization)
  Sender: FDA-Public Use
  Company Number: CA-MERCK-0411CAN00227

PATIENT

DRUGS (8)
  1. VIOXX [Suspect]
     Indication: GENERAL SYMPTOM
     Route: 048
     Dates: start: 20031201
  2. HYDROMORPHONE HYDROCHLORIDE [Concomitant]
     Route: 065
  3. HYDROMORPHONE HYDROCHLORIDE [Concomitant]
     Route: 065
  4. HYDROMORPHONE HYDROCHLORIDE [Concomitant]
     Route: 065
  5. ALPRAZOLAM [Concomitant]
     Route: 065
  6. AMITRIPTYLINE HYDROCHLORIDE [Concomitant]
     Route: 065
  7. AZITHROMYCIN [Concomitant]
     Route: 065
  8. FOLIC ACID [Concomitant]
     Route: 065

REACTIONS (4)
  - ADVERSE EVENT [None]
  - FACE OEDEMA [None]
  - OEDEMA PERIPHERAL [None]
  - PAIN [None]
